FAERS Safety Report 19043192 (Version 1)
Quarter: 2021Q1

REPORT INFORMATION
  Report Type: Spontaneous
  Country: US (occurrence: US)
  Receive Date: 20210323
  Receipt Date: 20210323
  Transmission Date: 20210420
  Serious: Yes (Death, Other)
  Sender: FDA-Public Use
  Company Number: US-TEVA-2021-US-1892533

PATIENT
  Sex: Female

DRUGS (8)
  1. MORPHINE ER [Suspect]
     Active Substance: MORPHINE
     Route: 065
  2. DILAUDID [Suspect]
     Active Substance: HYDROMORPHONE HYDROCHLORIDE
     Route: 065
  3. MS CONTIN [Suspect]
     Active Substance: MORPHINE SULFATE
     Route: 065
  4. TRAMADOL. [Suspect]
     Active Substance: TRAMADOL
     Route: 065
  5. BUTRANS [Suspect]
     Active Substance: BUPRENORPHINE
     Route: 065
  6. HYDROCODONE AND ACETAMINOPHEN [Suspect]
     Active Substance: ACETAMINOPHEN\HYDROCODONE
     Route: 065
  7. OXYCODONE EXTENDED?RELEASE [Suspect]
     Active Substance: OXYCODONE
     Route: 065
  8. OXYCODONE AND ACETAMINOPHEN [Suspect]
     Active Substance: ACETAMINOPHEN\OXYCODONE HYDROCHLORIDE
     Route: 065

REACTIONS (3)
  - Death [Fatal]
  - Drug dependence [Unknown]
  - Overdose [Unknown]
